FAERS Safety Report 20668064 (Version 1)
Quarter: 2022Q2

REPORT INFORMATION
  Report Type: Spontaneous
  Country: US (occurrence: None)
  Receive Date: 20220402
  Receipt Date: 20220402
  Transmission Date: 20220721
  Serious: Yes (Other)
  Sender: FDA-Public Use
  Company Number: None

PATIENT
  Age: 51 Year
  Sex: Female
  Weight: 66.6 kg

DRUGS (1)
  1. EVUSHELD [Suspect]
     Active Substance: CILGAVIMAB\TIXAGEVIMAB
     Indication: Immunodeficiency
     Dosage: OTHER FREQUENCY : ONCE;?
     Route: 030
     Dates: start: 20220402, end: 20220402

REACTIONS (4)
  - Chest pain [None]
  - Chest discomfort [None]
  - Dizziness [None]
  - Blood pressure increased [None]

NARRATIVE: CASE EVENT DATE: 20220402
